FAERS Safety Report 26038994 (Version 2)
Quarter: 2025Q4

REPORT INFORMATION
  Report Type: Spontaneous
  Country: EU (occurrence: EU)
  Receive Date: 20251113
  Receipt Date: 20251127
  Transmission Date: 20260118
  Serious: Yes (Other)
  Sender: TEVA
  Company Number: EU-CHEPLA-2025011931

PATIENT
  Age: 37 Year
  Sex: Female

DRUGS (11)
  1. PREDNISOLONE [Suspect]
     Active Substance: PREDNISOLONE
     Indication: Product used for unknown indication
     Route: 065
  2. NERISONE [Suspect]
     Active Substance: DIFLUCORTOLONE VALERATE
     Indication: Dermatitis contact
     Route: 061
  3. HYDROCORTISONE BUTYRATE [Suspect]
     Active Substance: HYDROCORTISONE BUTYRATE
     Indication: Product used for unknown indication
     Dosage: REPORTED AS LOCOID
     Route: 065
  4. BETAMETHASONE DIPROPIONATE [Suspect]
     Active Substance: BETAMETHASONE DIPROPIONATE
     Indication: Dermatitis contact
     Route: 061
  5. HYDROCORTISONE [Suspect]
     Active Substance: HYDROCORTISONE
     Indication: Product used for unknown indication
     Dosage: DOUBLED TO 4 TABLETS PER DAY
     Route: 048
     Dates: start: 20171219
  6. HYDROCORTISONE [Suspect]
     Active Substance: HYDROCORTISONE
     Indication: Product used for unknown indication
     Route: 048
     Dates: start: 20171120
  7. XYZAL [Concomitant]
     Active Substance: LEVOCETIRIZINE DIHYDROCHLORIDE
     Indication: Antiallergic therapy
     Route: 065
  8. DIPROSONE [Suspect]
     Active Substance: BETAMETHASONE DIPROPIONATE
     Indication: Dermatitis contact
     Route: 061
     Dates: start: 2009, end: 2016
  9. DIPROSONE [Suspect]
     Active Substance: BETAMETHASONE DIPROPIONATE
     Indication: Dermatitis contact
     Dosage: RENEWED
     Route: 061
  10. DIPROSONE [Suspect]
     Active Substance: BETAMETHASONE DIPROPIONATE
     Indication: Dermatitis contact
     Dosage: AGAIN PRESCRIBED
     Route: 061
     Dates: start: 20171120
  11. PREDNISOLONE SODIUM METASULFOBENZOATE [Suspect]
     Active Substance: PREDNISOLONE SODIUM METAZOATE
     Indication: Product used for unknown indication
     Dosage: REPORTED AS SOLUPRED
     Route: 065

REACTIONS (8)
  - Suicidal ideation [Unknown]
  - Fatigue [Unknown]
  - Condition aggravated [Unknown]
  - Emotional distress [Unknown]
  - Insomnia [Unknown]
  - Depression [Unknown]
  - Drug ineffective [Unknown]
  - Loss of personal independence in daily activities [Unknown]
